FAERS Safety Report 6479527-7 (Version None)
Quarter: 2009Q4

REPORT INFORMATION
  Report Type: 
  Country: None (occurrence: None)
  Receive Date: 20091207
  Receipt Date: 20091207
  Transmission Date: 20100525
  Serious: Yes (Disabling)
  Sender: FDA-Public Use
  Company Number: None

PATIENT
  Age: 39 Year
  Sex: Male

DRUGS (1)
  1. NAFCILLIN [Suspect]
     Indication: INFECTION
     Dosage: 12GM EVERY 24 HOURS IV DRIP 5-7 DAYS
     Route: 041

REACTIONS (1)
  - TUBULOINTERSTITIAL NEPHRITIS [None]
